FAERS Safety Report 22607037 (Version 2)
Quarter: 2023Q2

REPORT INFORMATION
  Report Type: Spontaneous
  Country: FR (occurrence: FR)
  Receive Date: 20230615
  Receipt Date: 20230626
  Transmission Date: 20230721
  Serious: Yes (Hospitalization)
  Sender: FDA-Public Use
  Company Number: FR-TEVA-2023-FR-2896684

PATIENT
  Age: 38 Year
  Sex: Female

DRUGS (12)
  1. MIRTAZAPINE [Suspect]
     Active Substance: MIRTAZAPINE
     Indication: Antipsychotic therapy
     Dosage: 15 MILLIGRAM DAILY; ONCE DAILY
     Route: 065
  2. QUETIAPINE [Suspect]
     Active Substance: QUETIAPINE
     Indication: Antipsychotic therapy
     Dosage: 400 MILLIGRAM DAILY; ONCE DAILY
     Route: 065
     Dates: start: 20220422
  3. AMISULPRIDE [Suspect]
     Active Substance: AMISULPRIDE
     Indication: Antipsychotic therapy
     Dosage: 50 MILLIGRAM DAILY; ONCE DAILY
     Route: 065
     Dates: start: 20220422
  4. PAROXETINE [Suspect]
     Active Substance: PAROXETINE
     Indication: Depressive symptom
     Dosage: 20 MILLIGRAM DAILY; ONCE DAILY
     Route: 065
     Dates: start: 20220423, end: 20220425
  5. PAROXETINE [Suspect]
     Active Substance: PAROXETINE
     Dosage: 40 MILLIGRAM DAILY; ONCE DAILY
     Route: 065
     Dates: start: 20220426
  6. ARIPIPRAZOLE [Interacting]
     Active Substance: ARIPIPRAZOLE
     Indication: Antipsychotic therapy
     Dosage: 5 MILLIGRAM DAILY; ONCE DAILY
     Route: 065
     Dates: start: 20220610
  7. LAMOTRIGINE [Interacting]
     Active Substance: LAMOTRIGINE
     Indication: Antipsychotic therapy
     Dosage: 25 MILLIGRAM DAILY; ONCE DAILY
     Route: 065
     Dates: start: 20220608
  8. DIAZEPAM [Interacting]
     Active Substance: DIAZEPAM
     Indication: Sedative therapy
     Dosage: 30 MILLIGRAM DAILY; ONCE DAILY
     Route: 065
     Dates: start: 20220422
  9. ZOPICLONE [Interacting]
     Active Substance: ZOPICLONE
     Indication: Sedative therapy
     Dosage: 7.5 MILLIGRAM DAILY; ONCE DAILY
     Route: 065
     Dates: start: 20220422
  10. OLANZAPINE [Suspect]
     Active Substance: OLANZAPINE
     Indication: Antipsychotic therapy
     Dosage: 10 MILLIGRAM DAILY; ONCE DAILY
     Route: 065
  11. CYAMEMAZINE [Suspect]
     Active Substance: CYAMEMAZINE
     Indication: Antipsychotic therapy
     Dosage: 150 MILLIGRAM DAILY; ONCE DAILY
     Route: 065
     Dates: start: 20220422
  12. ETONOGESTREL [Concomitant]
     Active Substance: ETONOGESTREL
     Indication: Contraception
     Route: 015

REACTIONS (7)
  - Weight increased [Unknown]
  - Dystonia [Unknown]
  - Psychotic symptom [Recovered/Resolved]
  - Confusional state [Recovered/Resolved]
  - Drug interaction [Unknown]
  - Drug interaction [Unknown]
  - Drug ineffective [Unknown]
